FAERS Safety Report 22602448 (Version 3)
Quarter: 2024Q1

REPORT INFORMATION
  Report Type: Spontaneous
  Country: US (occurrence: US)
  Receive Date: 20230614
  Receipt Date: 20240111
  Transmission Date: 20240409
  Serious: Yes (Other)
  Sender: FDA-Public Use
  Company Number: US-JNJFOC-20230613122

PATIENT
  Sex: Female

DRUGS (1)
  1. ELMIRON [Suspect]
     Active Substance: PENTOSAN POLYSULFATE SODIUM
     Indication: Cystitis interstitial
     Dosage: VARYING DOSES OF 100 AND 200 MG WITH VARYING FREQUENCIES OF TWICE AND THRICE DAILY
     Route: 048
     Dates: start: 2003, end: 2021

REACTIONS (2)
  - Maculopathy [Unknown]
  - Off label use [Unknown]
